FAERS Safety Report 24133612 (Version 1)
Quarter: 2024Q3

REPORT INFORMATION
  Report Type: Report from Study
  Country: US (occurrence: US)
  Receive Date: 20240724
  Receipt Date: 20240724
  Transmission Date: 20241017
  Serious: Yes (Other)
  Sender: ABBVIE
  Company Number: US-ABBVIE-5840513

PATIENT
  Sex: Female

DRUGS (1)
  1. HUMIRA [Suspect]
     Active Substance: ADALIMUMAB
     Indication: Product used for unknown indication
     Dosage: CITRATE FREE
     Route: 058
     Dates: start: 20231212, end: 2024

REACTIONS (5)
  - Hip fracture [Unknown]
  - Medical device removal [Recovering/Resolving]
  - Fall [Recovering/Resolving]
  - Discomfort [Unknown]
  - Clumsiness [Unknown]

NARRATIVE: CASE EVENT DATE: 20240101
